FAERS Safety Report 23395210 (Version 1)
Quarter: 2024Q1

REPORT INFORMATION
  Report Type: Spontaneous
  Country: RU (occurrence: RU)
  Receive Date: 20240112
  Receipt Date: 20240112
  Transmission Date: 20240409
  Serious: Yes (Other)
  Sender: FDA-Public Use
  Company Number: None

PATIENT

DRUGS (12)
  1. ONCASPAR [Suspect]
     Active Substance: PEGASPARGASE
     Indication: Acute lymphocytic leukaemia
     Dosage: 670 IU
     Route: 042
     Dates: start: 20230921, end: 20230921
  2. ONCASPAR [Suspect]
     Active Substance: PEGASPARGASE
     Dosage: 237 IU
     Route: 042
     Dates: start: 20231104, end: 20231104
  3. PREDNISOLONE [Concomitant]
     Active Substance: PREDNISOLONE
     Indication: Premedication
     Dosage: 10 MG
     Route: 008
     Dates: start: 20230919, end: 20231103
  4. PREDNISOLONE [Concomitant]
     Active Substance: PREDNISOLONE
     Indication: Acute lymphocytic leukaemia
     Dosage: 30 MG
     Route: 042
     Dates: start: 20231104, end: 20231104
  5. METHOTREXATE (METHOTREXATE SODIUM) [Concomitant]
     Active Substance: METHOTREXATE SODIUM
     Indication: Product used for unknown indication
     Dosage: 12 MG
     Route: 037
     Dates: start: 20230919, end: 20231103
  6. METHOTREXATE (METHOTREXATE SODIUM) [Concomitant]
     Active Substance: METHOTREXATE SODIUM
     Dosage: 21 MG
     Route: 030
     Dates: start: 20231103
  7. CYTARABINE [Concomitant]
     Active Substance: CYTARABINE
     Indication: Acute lymphocytic leukaemia
     Dosage: 30 MG
     Route: 037
     Dates: start: 20230919, end: 20231103
  8. COTRIMOXAZOLE [Concomitant]
     Active Substance: SULFAMETHOXAZOLE\TRIMETHOPRIM
     Indication: Product used for unknown indication
     Dosage: 240 MG, BID, EVERY ALTERNATIVE DAY
     Route: 048
     Dates: start: 20230924
  9. DAUNORUBICIN [Concomitant]
     Active Substance: DAUNORUBICIN
     Indication: Acute lymphocytic leukaemia
     Dosage: 30 MG
     Route: 065
     Dates: start: 20230926, end: 20230926
  10. MERCAPTOPURINE [Concomitant]
     Active Substance: MERCAPTOPURINE
     Indication: Product used for unknown indication
     Dosage: 12.5 MG
     Route: 048
     Dates: start: 20231101
  11. SODIUM CHLORIDE [Concomitant]
     Active Substance: SODIUM CHLORIDE
     Indication: Product used for unknown indication
     Dosage: 100 ML
     Route: 042
     Dates: start: 20231104, end: 20231104
  12. WATER [Concomitant]
     Active Substance: WATER
     Indication: Product used for unknown indication
     Dosage: 5.2 ML
     Route: 042
     Dates: start: 20231104, end: 20231104

REACTIONS (4)
  - Urticaria [Recovered/Resolved]
  - Cough [Recovered/Resolved]
  - Abdominal pain [Recovered/Resolved]
  - Oedema [Recovered/Resolved]

NARRATIVE: CASE EVENT DATE: 20231104
